FAERS Safety Report 25607348 (Version 1)
Quarter: 2025Q3

REPORT INFORMATION
  Report Type: Report from Study
  Country: AR (occurrence: AR)
  Receive Date: 20250725
  Receipt Date: 20250725
  Transmission Date: 20251020
  Serious: Yes (Death)
  Sender: ABBVIE
  Company Number: AR-ABBVIE-6387202

PATIENT
  Age: 79 Year
  Sex: Female

DRUGS (1)
  1. SKYRIZI [Suspect]
     Active Substance: RISANKIZUMAB-RZAA
     Indication: Crohn^s disease
     Dosage: FORM STRENGTH: 360MG/2.4 ML?LAST ADMIN DATE 2025
     Route: 058
     Dates: start: 20250115

REACTIONS (1)
  - Laryngeal cancer [Fatal]

NARRATIVE: CASE EVENT DATE: 20250501
